FAERS Safety Report 15316869 (Version 1)
Quarter: 2018Q3

REPORT INFORMATION
  Report Type: Report from Study
  Country: US (occurrence: US)
  Receive Date: 20180824
  Receipt Date: 20180824
  Transmission Date: 20181010
  Serious: Yes (Hospitalization, Other)
  Sender: FDA-Public Use
  Company Number: US-JNJFOC-20180832381

PATIENT
  Sex: Male
  Weight: 70 kg

DRUGS (62)
  1. XARELTO [Suspect]
     Active Substance: RIVAROXABAN
     Indication: DEEP VEIN THROMBOSIS
     Route: 048
     Dates: start: 20171130, end: 201712
  2. ELIGARD [Concomitant]
     Active Substance: LEUPROLIDE ACETATE
     Route: 065
     Dates: start: 20171213
  3. ACETAMINOPHEN. [Concomitant]
     Active Substance: ACETAMINOPHEN
     Indication: PAIN
     Dosage: 650 MG, Q4HR, PRN
     Route: 065
  4. MEGACE [Concomitant]
     Active Substance: MEGESTROL ACETATE
     Route: 065
  5. MIRTAZAPINE. [Concomitant]
     Active Substance: MIRTAZAPINE
     Dosage: 30 MG, NIGHTLY
     Route: 048
  6. MORPHINE [Concomitant]
     Active Substance: MORPHINE
     Route: 048
  7. HYDROCORTISONE. [Concomitant]
     Active Substance: HYDROCORTISONE
     Route: 065
  8. DENOSUMAB [Concomitant]
     Active Substance: DENOSUMAB
     Route: 065
     Dates: start: 20171116
  9. DENOSUMAB [Concomitant]
     Active Substance: DENOSUMAB
     Route: 065
     Dates: start: 20171213
  10. TAXOL [Concomitant]
     Active Substance: PACLITAXEL
     Dosage: 80 MG/M2
     Route: 065
     Dates: start: 20180206
  11. FENTANYL. [Concomitant]
     Active Substance: FENTANYL
     Route: 065
  12. XOFIGO [Suspect]
     Active Substance: RADIUM RA-223 DICHLORIDE
     Indication: METASTASES TO BONE
     Dosage: 100.70 ONCE EVERY 28 DAYS
     Route: 042
     Dates: start: 20171025
  13. TETRACYCLINE [Concomitant]
     Active Substance: TETRACYCLINE
     Route: 065
  14. TAXOL [Concomitant]
     Active Substance: PACLITAXEL
     Dosage: 80 MG/M2
     Route: 065
     Dates: start: 20180123
  15. LOVENOX [Concomitant]
     Active Substance: ENOXAPARIN SODIUM
     Route: 065
     Dates: start: 20180107
  16. LOVENOX [Concomitant]
     Active Substance: ENOXAPARIN SODIUM
     Route: 065
     Dates: start: 20180117
  17. LOVENOX [Concomitant]
     Active Substance: ENOXAPARIN SODIUM
     Route: 065
     Dates: start: 20180118
  18. LOVENOX [Concomitant]
     Active Substance: ENOXAPARIN SODIUM
     Route: 065
     Dates: start: 20180314
  19. MS CONTIN [Concomitant]
     Active Substance: MORPHINE SULFATE
     Indication: PAIN
     Route: 065
  20. ALLOPURINOL. [Concomitant]
     Active Substance: ALLOPURINOL
     Route: 048
  21. NYSTATIN. [Concomitant]
     Active Substance: NYSTATIN
     Route: 065
  22. LOVENOX [Concomitant]
     Active Substance: ENOXAPARIN SODIUM
     Route: 065
     Dates: start: 20180523
  23. LOVENOX [Concomitant]
     Active Substance: ENOXAPARIN SODIUM
     Route: 065
     Dates: start: 20180624
  24. LOVENOX [Concomitant]
     Active Substance: ENOXAPARIN SODIUM
     Route: 065
     Dates: start: 20180626
  25. SACCHAROMYCES BOULARDII [Concomitant]
     Active Substance: SACCHAROMYCES CEREVISIAE
     Route: 048
  26. XOFIGO [Suspect]
     Active Substance: RADIUM RA-223 DICHLORIDE
     Indication: PROSTATE CANCER STAGE IV
     Dosage: 104.3 +#956;CI, UNK
     Route: 042
     Dates: start: 20170830
  27. OSCAL [Concomitant]
     Active Substance: CALCIUM CARBONATE
     Dosage: 1 TAB 2X WEEK
     Route: 065
  28. DIPHENHYDRAMINE. [Concomitant]
     Active Substance: DIPHENHYDRAMINE
     Route: 065
  29. TAXOL [Concomitant]
     Active Substance: PACLITAXEL
     Dosage: 80 MG/M2
     Route: 065
     Dates: start: 20180130
  30. LOVENOX [Concomitant]
     Active Substance: ENOXAPARIN SODIUM
     Route: 065
     Dates: start: 20180110
  31. LOVENOX [Concomitant]
     Active Substance: ENOXAPARIN SODIUM
     Route: 065
     Dates: start: 20180317
  32. LOVENOX [Concomitant]
     Active Substance: ENOXAPARIN SODIUM
     Route: 065
     Dates: start: 20180525
  33. CABAZITAXEL [Concomitant]
     Active Substance: CABAZITAXEL
     Dosage: 17 MG/M2
     Route: 065
     Dates: start: 20180516
  34. LORATADINE. [Concomitant]
     Active Substance: LORATADINE
     Route: 065
  35. XOFIGO [Suspect]
     Active Substance: RADIUM RA-223 DICHLORIDE
     Indication: METASTASES TO BONE
     Dosage: 117.1 +#956;CI, EVERY 28 DAYS
     Route: 042
     Dates: start: 20171115
  36. DENOSUMAB [Concomitant]
     Active Substance: DENOSUMAB
     Route: 065
     Dates: start: 20180529
  37. TAXOL [Concomitant]
     Active Substance: PACLITAXEL
     Dosage: 80 MG/M2
     Route: 065
     Dates: start: 20180102
  38. LOVENOX [Concomitant]
     Active Substance: ENOXAPARIN SODIUM
     Route: 065
     Dates: start: 20180108
  39. LOVENOX [Concomitant]
     Active Substance: ENOXAPARIN SODIUM
     Route: 065
     Dates: start: 20180109
  40. LOVENOX [Concomitant]
     Active Substance: ENOXAPARIN SODIUM
     Route: 065
     Dates: start: 20180315
  41. LOVENOX [Concomitant]
     Active Substance: ENOXAPARIN SODIUM
     Route: 065
     Dates: start: 20180625
  42. XOFIGO [Suspect]
     Active Substance: RADIUM RA-223 DICHLORIDE
     Indication: PROSTATE CANCER STAGE IV
     Dosage: 111.1 +#956;CI, EVERY 28 DAYS
     Route: 042
     Dates: start: 20170927
  43. XOFIGO [Suspect]
     Active Substance: RADIUM RA-223 DICHLORIDE
     Indication: METASTASES TO BONE
     Dosage: 111.1 +#956;CI, EVERY 28 DAYS
     Route: 042
     Dates: start: 20170927
  44. TAMSULOSIN [Concomitant]
     Active Substance: TAMSULOSIN
     Route: 065
  45. ZOLEDRONIC ACID [Concomitant]
     Active Substance: ZOLEDRONIC ACID
     Route: 065
     Dates: start: 20170917
  46. DENOSUMAB [Concomitant]
     Active Substance: DENOSUMAB
     Route: 065
     Dates: start: 20180327
  47. LOVENOX [Concomitant]
     Active Substance: ENOXAPARIN SODIUM
     Route: 065
     Dates: start: 20180116
  48. LOVENOX [Concomitant]
     Active Substance: ENOXAPARIN SODIUM
     Route: 065
     Dates: start: 20180316
  49. CABAZITAXEL [Concomitant]
     Active Substance: CABAZITAXEL
     Dosage: 20 MG/M2
     Route: 065
     Dates: start: 20180606
  50. XARELTO [Suspect]
     Active Substance: RIVAROXABAN
     Indication: DEEP VEIN THROMBOSIS
     Route: 048
     Dates: start: 20170901, end: 201712
  51. XOFIGO [Suspect]
     Active Substance: RADIUM RA-223 DICHLORIDE
     Indication: METASTASES TO BONE
     Dosage: 104.3 +#956;CI, UNK
     Route: 042
     Dates: start: 20170830
  52. XOFIGO [Suspect]
     Active Substance: RADIUM RA-223 DICHLORIDE
     Indication: PROSTATE CANCER STAGE IV
     Dosage: 117.1 +#956;CI, EVERY 28 DAYS
     Route: 042
     Dates: start: 20171115
  53. CALCIUM +VIT D [Concomitant]
     Active Substance: CALCIUM\VITAMIN D
     Dosage: 1 TAB PER WEEK
     Route: 065
  54. VITAMIN D3 [Concomitant]
     Active Substance: CHOLECALCIFEROL
     Dosage: 50,000 UNITS WEEKLY
     Route: 065
  55. TAXOL [Concomitant]
     Active Substance: PACLITAXEL
     Dosage: 80 MG/M2
     Route: 065
     Dates: start: 20170126
  56. ASPIRIN. [Concomitant]
     Active Substance: ASPIRIN
     Route: 048
  57. XOFIGO [Suspect]
     Active Substance: RADIUM RA-223 DICHLORIDE
     Indication: PROSTATE CANCER STAGE IV
     Dosage: 100.70 ONCE EVERY 28 DAYS
     Route: 042
     Dates: start: 20171025
  58. ELIGARD [Concomitant]
     Active Substance: LEUPROLIDE ACETATE
     Route: 065
     Dates: start: 20180529
  59. ATENOLOL. [Concomitant]
     Active Substance: ATENOLOL
     Route: 048
  60. FAMOTIDINE. [Concomitant]
     Active Substance: FAMOTIDINE
     Route: 048
  61. FOLIC ACID. [Concomitant]
     Active Substance: FOLIC ACID
     Route: 048
  62. ATENOLOL. [Concomitant]
     Active Substance: ATENOLOL
     Route: 065

REACTIONS (11)
  - Malaise [Unknown]
  - Fatigue [Unknown]
  - Ecchymosis [Unknown]
  - Rash [Unknown]
  - Gait disturbance [Unknown]
  - Atrophy [Unknown]
  - Muscle tone disorder [Unknown]
  - General physical health deterioration [Unknown]
  - Anaemia [Unknown]
  - Haemoglobin decreased [Unknown]
  - Arthralgia [Unknown]
